FAERS Safety Report 7141500-3 (Version None)
Quarter: 2010Q4

REPORT INFORMATION
  Report Type: 
  Country: None (occurrence: None)
  Receive Date: 20101207
  Receipt Date: 20101124
  Transmission Date: 20110411
  Serious: Yes (Other)
  Sender: FDA-Public Use
  Company Number: CA-ELI_LILLY_AND_COMPANY-CA201010004957

PATIENT
  Age: 23 Year
  Sex: Male

DRUGS (5)
  1. ADCIRCA [Suspect]
     Indication: PULMONARY ARTERIAL HYPERTENSION
     Dosage: 40 MG, DAILY (1/D)
  2. FLOLAN [Concomitant]
  3. COUMADIN [Concomitant]
  4. SYNTHROID [Concomitant]
  5. INSULIN [Concomitant]

REACTIONS (4)
  - EYE PAIN [None]
  - HEADACHE [None]
  - NAUSEA [None]
  - VOMITING [None]
